FAERS Safety Report 21994690 (Version 4)
Quarter: 2023Q1

REPORT INFORMATION
  Report Type: Spontaneous
  Country: US (occurrence: US)
  Receive Date: 20230215
  Receipt Date: 20230306
  Transmission Date: 20230418
  Serious: Yes (Death, Life-Threatening, Hospitalization, Other)
  Sender: FDA-Public Use
  Company Number: US-PFIZER INC-202300062449

PATIENT
  Sex: Male
  Weight: 1.76 kg

DRUGS (1)
  1. SODIUM CHLORIDE [Suspect]
     Active Substance: SODIUM CHLORIDE
     Dosage: 120 ML

REACTIONS (4)
  - Off label use [Fatal]
  - Premature baby [Fatal]
  - Death neonatal [Fatal]
  - Cardiac arrest neonatal [Fatal]
